FAERS Safety Report 7632285-2 (Version None)
Quarter: 2011Q3

REPORT INFORMATION
  Report Type: 
  Country: None (occurrence: None)
  Receive Date: 20110725
  Receipt Date: 20100714
  Transmission Date: 20111222
  Serious: No
  Sender: FDA-Public Use
  Company Number: US-BRISTOL-MYERS SQUIBB COMPANY-15193261

PATIENT
  Age: 40 Year
  Sex: Male

DRUGS (9)
  1. LIPITOR [Concomitant]
  2. LUNESTA [Concomitant]
  3. VIREAD [Concomitant]
  4. ISENTRESS [Concomitant]
  5. CHANTIX [Concomitant]
  6. NORVIR [Concomitant]
  7. PREZISTA [Concomitant]
  8. COUMADIN [Suspect]
  9. LETAIRIS [Suspect]
     Indication: PULMONARY ARTERIAL HYPERTENSION
     Route: 048
     Dates: start: 20100223

REACTIONS (1)
  - LIVER FUNCTION TEST ABNORMAL [None]
